FAERS Safety Report 8664788 (Version 2)
Quarter: 2013Q4

REPORT INFORMATION
  Report Type: Spontaneous
  Country: US (occurrence: US)
  Receive Date: 20120713
  Receipt Date: 20131101
  Transmission Date: 20140711
  Serious: No
  Sender: FDA-Public Use
  Company Number: US-009507513-1206USA02912

PATIENT
  Sex: Male

DRUGS (3)
  1. JANUVIA [Suspect]
     Indication: DIABETES MELLITUS
     Dosage: 100 MG, QD
     Route: 048
     Dates: start: 201201, end: 20120611
  2. LIPITOR [Concomitant]
  3. MK-9378 [Concomitant]

REACTIONS (2)
  - Chest pain [Recovered/Resolved]
  - Back pain [Recovered/Resolved]
